FAERS Safety Report 23267980 (Version 8)
Quarter: 2025Q1

REPORT INFORMATION
  Report Type: Spontaneous
  Country: FR (occurrence: FR)
  Receive Date: 20231206
  Receipt Date: 20250128
  Transmission Date: 20250408
  Serious: Yes (Death, Life-Threatening, Other)
  Sender: BAUSCH AND LOMB
  Company Number: None

PATIENT
  Age: 62 Year
  Sex: Male

DRUGS (17)
  1. DICLOFENAC [Interacting]
     Active Substance: DICLOFENAC
     Indication: Back pain
     Route: 048
     Dates: start: 20231013
  2. MEDROL [Interacting]
     Active Substance: METHYLPREDNISOLONE
     Indication: Back pain
     Route: 048
     Dates: start: 20231017, end: 20231021
  3. MEDROL [Interacting]
     Active Substance: METHYLPREDNISOLONE
     Route: 048
     Dates: start: 20231022, end: 20231026
  4. MEDROL [Interacting]
     Active Substance: METHYLPREDNISOLONE
     Route: 048
     Dates: start: 20231013, end: 20231016
  5. KARDEGIC [Interacting]
     Active Substance: ASPIRIN DL-LYSINE
     Indication: Cardiovascular event prophylaxis
     Dosage: KARDEGIC 75 MG, POWDER FOR ORAL SOLUTION IN SACHET-DOSE, POWDER AND SOLVENT FOR ORAL SOLUTION
     Route: 048
     Dates: start: 2023, end: 2023
  6. NAPROXEN [Interacting]
     Active Substance: NAPROXEN
     Indication: Back pain
     Route: 048
     Dates: start: 20231013
  7. HEPARIN SODIUM [Interacting]
     Active Substance: HEPARIN SODIUM
     Indication: Infarction
     Route: 042
     Dates: start: 20231027
  8. TICAGRELOR [Interacting]
     Active Substance: TICAGRELOR
     Indication: Infarction
     Route: 048
     Dates: start: 20231027, end: 20231027
  9. ARIXTRA [Interacting]
     Active Substance: FONDAPARINUX SODIUM
     Indication: Infarction
     Route: 058
     Dates: start: 20231027
  10. ROSUVASTATIN [Concomitant]
     Active Substance: ROSUVASTATIN
     Indication: Product used for unknown indication
     Route: 048
  11. NITRENDIPINE [Concomitant]
     Active Substance: NITRENDIPINE
     Indication: Product used for unknown indication
     Route: 048
  12. DAPAGLIFLOZIN [Concomitant]
     Active Substance: DAPAGLIFLOZIN
     Indication: Product used for unknown indication
     Dosage: FORXIGA 10 MG, FILM-COATED TABLET
     Route: 048
  13. HYDROCHLOROTHIAZIDE [Concomitant]
     Active Substance: HYDROCHLOROTHIAZIDE
     Indication: Product used for unknown indication
     Route: 048
  14. METFORMIN HYDROCHLORIDE\SAXAGLIPTIN [Concomitant]
     Active Substance: METFORMIN HYDROCHLORIDE\SAXAGLIPTIN
     Indication: Product used for unknown indication
     Dosage: KOMBOGLYZE 2.5 MG/1000 MG, FILM-COATED TABLET
     Route: 048
  15. CANDESARTAN CILEXETIL [Concomitant]
     Active Substance: CANDESARTAN CILEXETIL
     Indication: Product used for unknown indication
     Route: 048
  16. ACETAMINOPHEN\CAFFEINE [Concomitant]
     Active Substance: ACETAMINOPHEN\CAFFEINE
     Indication: Product used for unknown indication
     Route: 065
  17. REPAGLINIDE [Concomitant]
     Active Substance: REPAGLINIDE
     Indication: Product used for unknown indication
     Route: 065

REACTIONS (4)
  - Shock haemorrhagic [Fatal]
  - Pulmonary embolism [Fatal]
  - Drug interaction [Fatal]
  - Gastroduodenal ulcer [Fatal]

NARRATIVE: CASE EVENT DATE: 20231027
